FAERS Safety Report 4922158-8 (Version None)
Quarter: 2006Q1

REPORT INFORMATION
  Report Type: 
  Country: None (occurrence: None)
  Receive Date: 20060224
  Receipt Date: 20050413
  Transmission Date: 20060701
  Serious: Yes (Hospitalization)
  Sender: FDA-Public Use
  Company Number: US-MERCK-0504USA02181

PATIENT
  Age: 70 Year
  Sex: Male
  Weight: 95 kg

DRUGS (17)
  1. VIOXX [Suspect]
     Indication: PAIN IN EXTREMITY
     Route: 048
     Dates: start: 20030201, end: 20030901
  2. LASIX [Concomitant]
     Route: 065
  3. AMARYL [Concomitant]
     Route: 065
  4. AVANDIA [Concomitant]
     Route: 065
  5. ASPIRIN [Concomitant]
     Route: 065
  6. COREG [Concomitant]
     Route: 065
  7. DIOVAN [Concomitant]
     Route: 065
  8. POTASSIUM CHLORIDE [Concomitant]
     Route: 065
  9. AMIODARONE MSD [Concomitant]
     Route: 065
  10. XANAX [Concomitant]
     Route: 065
  11. FOLTX [Concomitant]
     Route: 065
  12. DILAUDID [Concomitant]
     Indication: PAIN
     Route: 065
  13. LANTUS [Concomitant]
     Route: 065
  14. HUMALOG [Concomitant]
     Route: 065
  15. COLACE [Concomitant]
     Route: 065
  16. TEQUIN [Concomitant]
     Route: 065
  17. COUMADIN [Suspect]
     Route: 065
     Dates: start: 20030907

REACTIONS (9)
  - ABDOMINAL HERNIA [None]
  - ANAEMIA [None]
  - CARDIAC FAILURE CONGESTIVE [None]
  - EMOTIONAL DISORDER [None]
  - GASTROINTESTINAL HAEMORRHAGE [None]
  - INJURY [None]
  - PLEURAL HAEMORRHAGE [None]
  - PULMONARY EMBOLISM [None]
  - RENAL FAILURE ACUTE [None]
